FAERS Safety Report 15335896 (Version 2)
Quarter: 2018Q3

REPORT INFORMATION
  Report Type: Spontaneous
  Country: RS (occurrence: RS)
  Receive Date: 20180830
  Receipt Date: 20180912
  Transmission Date: 20181010
  Serious: No
  Sender: FDA-Public Use
  Company Number: PHHY2018RS079636

PATIENT
  Age: 33 Year
  Sex: Female

DRUGS (1)
  1. OSPAMOX [Suspect]
     Active Substance: AMOXICILLIN
     Indication: URINARY TRACT INFECTION
     Dosage: 1000 MG, BID (2X1)
     Route: 065

REACTIONS (1)
  - Exposure during pregnancy [Unknown]
